FAERS Safety Report 21627926 (Version 1)
Quarter: 2022Q4

REPORT INFORMATION
  Report Type: Spontaneous
  Country: US (occurrence: None)
  Receive Date: 20221121
  Receipt Date: 20221121
  Transmission Date: 20230113
  Serious: No
  Sender: FDA-Public Use
  Company Number: None

PATIENT
  Age: 46 Year
  Sex: Female
  Weight: 58.5 kg

DRUGS (4)
  1. PEG-3350\SODIUM CHLORIDE\SODIUM BICARBONATE\POTASSIUM CHLORIDE [Suspect]
     Active Substance: POLYETHYLENE GLYCOL 3350\POTASSIUM CHLORIDE\SODIUM BICARBONATE\SODIUM CHLORIDE
     Indication: Colonoscopy
     Dosage: OTHER QUANTITY : 1 4 LITERS;?OTHER FREQUENCY : DRINK 1/2 JUG X 2;?
     Route: 048
     Dates: start: 20221103, end: 20221103
  2. Gummy vitamins [Concomitant]
  3. prebiotic gummy [Concomitant]
  4. calcium chew [Concomitant]

REACTIONS (4)
  - Urticaria [None]
  - Hypersensitivity [None]
  - Lip swelling [None]
  - Syncope [None]

NARRATIVE: CASE EVENT DATE: 20221103
